FAERS Safety Report 5484623-7 (Version None)
Quarter: 2007Q4

REPORT INFORMATION
  Report Type: 
  Country: None (occurrence: None)
  Receive Date: 20071012
  Receipt Date: 20071003
  Transmission Date: 20080405
  Serious: Yes (Other)
  Sender: FDA-Public Use
  Company Number: CA-PFIZER INC-2007084071

PATIENT
  Sex: Female

DRUGS (2)
  1. DEPO-PROVERA SUSPENSION/INJ [Suspect]
     Route: 030
     Dates: start: 20020901, end: 20020901
  2. DEPO-PROVERA SUSPENSION/INJ [Suspect]
     Route: 030
     Dates: start: 20051101, end: 20051101

REACTIONS (12)
  - ALOPECIA [None]
  - AMENORRHOEA [None]
  - BLOOD PRESSURE INCREASED [None]
  - DEPRESSION [None]
  - HAIR GROWTH ABNORMAL [None]
  - HYPOTHYROIDISM [None]
  - LOSS OF LIBIDO [None]
  - MUSCULOSKELETAL DISORDER [None]
  - ONYCHOCLASIS [None]
  - OSTEOPOROSIS [None]
  - VULVOVAGINAL DRYNESS [None]
  - WEIGHT INCREASED [None]
